FAERS Safety Report 4353299-4 (Version None)
Quarter: 2004Q2

REPORT INFORMATION
  Report Type: 
  Country: None (occurrence: None)
  Receive Date: 20040505
  Receipt Date: 20030310
  Transmission Date: 20050107
  Serious: Yes (Hospitalization, Other)
  Sender: FDA-Public Use
  Company Number: 200312274US

PATIENT
  Sex: Female
  Weight: 147.7 kg

DRUGS (21)
  1. ARAVA [Suspect]
     Dates: start: 19990407, end: 20000816
  2. PREDNISONE [Concomitant]
     Dosage: DOSE: UNK
  3. VOLTAREN [Concomitant]
     Dosage: DOSE: UNK
  4. CELEBREX [Concomitant]
     Dosage: DOSE: UNK
  5. ORUVAIL [Concomitant]
     Dosage: DOSE: UNK
  6. MEDROL [Concomitant]
     Dosage: DOSE: UNK
  7. ARTHROTEC [Concomitant]
  8. TRAZODONE HCL [Concomitant]
  9. CELEXA [Concomitant]
  10. NORFLEX [Concomitant]
  11. AMBIEN [Concomitant]
  12. MULTI-VITAMINS [Concomitant]
     Dosage: DOSE: UNK
  13. ENBREL [Concomitant]
  14. METHOTREXATE [Concomitant]
     Dosage: DOSE: UNK
  15. SALSALATE [Concomitant]
     Dosage: DOSE: UNK
  16. REMICADE [Concomitant]
     Dosage: DOSE: UNK
  17. ELAVIL [Concomitant]
  18. PROZAC [Concomitant]
  19. IMITREX [Concomitant]
  20. DURAGESIC [Concomitant]
     Dosage: DOSE: UNK
  21. ULTRAM [Concomitant]
     Dosage: DOSE: UNK
     Dates: start: 20000701

REACTIONS (48)
  - ADRENAL INSUFFICIENCY [None]
  - ANAEMIA [None]
  - ARTHRITIS [None]
  - ASTHENIA [None]
  - BALANCE DISORDER [None]
  - BLOOD MAGNESIUM DECREASED [None]
  - CHILLS [None]
  - CONJUNCTIVITIS [None]
  - COSTOCHONDRITIS [None]
  - COUGH [None]
  - DEHYDRATION [None]
  - DIARRHOEA HAEMORRHAGIC [None]
  - DIVERTICULUM [None]
  - DYSPEPSIA [None]
  - DYSPNOEA [None]
  - FAECAL INCONTINENCE [None]
  - FALL [None]
  - FLANK PAIN [None]
  - GASTRIC ULCER [None]
  - HAEMATURIA [None]
  - HEADACHE [None]
  - HERPES ZOSTER [None]
  - HIATUS HERNIA [None]
  - HYPERTENSION [None]
  - HYPOAESTHESIA [None]
  - HYPOVOLAEMIA [None]
  - HYPOXIA [None]
  - LIVER FUNCTION TEST ABNORMAL [None]
  - METABOLIC ACIDOSIS [None]
  - MIGRAINE [None]
  - MUSCULAR WEAKNESS [None]
  - MUSCULOSKELETAL CHEST PAIN [None]
  - MYOPATHY STEROID [None]
  - NEPHROLITHIASIS [None]
  - NEUROPATHY [None]
  - OLIGURIA [None]
  - ORTHOSTATIC HYPOTENSION [None]
  - PARAESTHESIA [None]
  - POLYURIA [None]
  - PULMONARY HYPERTENSION [None]
  - RENAL CYST [None]
  - RENAL FAILURE ACUTE [None]
  - RHINORRHOEA [None]
  - STOOLS WATERY [None]
  - SYNCOPE [None]
  - UPPER RESPIRATORY TRACT INFECTION [None]
  - URINARY TRACT INFECTION [None]
  - VOMITING [None]
